FAERS Safety Report 9199647 (Version 3)
Quarter: 2013Q2

REPORT INFORMATION
  Report Type: Report from Study
  Country: FR (occurrence: FR)
  Receive Date: 20130329
  Receipt Date: 20130603
  Transmission Date: 20140414
  Serious: Yes (Hospitalization)
  Sender: FDA-Public Use
  Company Number: FR-009507513-1303FRA011876

PATIENT
  Age: 72 Year
  Sex: Male
  Weight: 85 kg

DRUGS (9)
  1. BOCEPREVIR [Suspect]
     Indication: CHRONIC HEPATITIS C
     Dosage: 800 MG, TID
     Route: 048
     Dates: start: 20130211, end: 20130325
  2. RIBAVIRIN [Suspect]
     Indication: CHRONIC HEPATITIS C
     Dosage: 500 MG, BID
     Route: 048
     Dates: start: 20130114, end: 20130325
  3. PEGINTERFERON ALFA-2B [Suspect]
     Indication: CHRONIC HEPATITIS C
     Dosage: 150 MICROGRAM, QW
     Route: 058
     Dates: start: 20130118, end: 20130325
  4. INEXIUM [Concomitant]
     Dosage: 40 MG, QD
  5. UROREC [Concomitant]
     Dosage: 4 MG, QD
     Dates: start: 2011
  6. LIPANTHYL [Concomitant]
     Indication: HYPERLIPIDAEMIA
     Dosage: 145 MG, QD
     Route: 048
  7. PROPRANOLOL HYDROCHLORIDE [Concomitant]
     Indication: VARICES OESOPHAGEAL
     Dosage: 160 MG, QD
     Route: 048
  8. SEROPRAM [Concomitant]
     Indication: DEPRESSION
     Dosage: 10 MG, QD
  9. NORDAZ [Concomitant]
     Dosage: 3.75 MG, QD

REACTIONS (1)
  - Pancytopenia [Recovered/Resolved]
